FAERS Safety Report 8280212-X (Version None)
Quarter: 2012Q2

REPORT INFORMATION
  Report Type: 
  Country: None (occurrence: None)
  Receive Date: 20120412
  Receipt Date: 20110907
  Transmission Date: 20120825
  Serious: No
  Sender: FDA-Public Use
  Company Number: US-ASTRAZENECA-2011SE15884

PATIENT
  Age: 81 Year
  Sex: Female

DRUGS (4)
  1. BONIVA [Concomitant]
  2. PRILOSEC OTC [Suspect]
     Route: 048
  3. SERTRALINE HYDROCHLORIDE [Concomitant]
  4. NEXIUM [Suspect]
     Route: 048

REACTIONS (4)
  - GASTROOESOPHAGEAL REFLUX DISEASE [None]
  - DYSPEPSIA [None]
  - DRUG INEFFECTIVE [None]
  - DRUG DOSE OMISSION [None]
